FAERS Safety Report 9416567 (Version 1)
Quarter: 2013Q3

REPORT INFORMATION
  Report Type: Spontaneous
  Country: CZ (occurrence: None)
  Receive Date: 20130719
  Receipt Date: 20130719
  Transmission Date: 20140515
  Serious: Yes (Hospitalization, Other)
  Sender: FDA-Public Use
  Company Number: 2013P1011962

PATIENT
  Age: 77 Year
  Sex: Male

DRUGS (1)
  1. METRONIDAZOLE [Suspect]

REACTIONS (2)
  - Eosinophilia [None]
  - Gastroenteritis [None]
